FAERS Safety Report 15871074 (Version 1)
Quarter: 2019Q1

REPORT INFORMATION
  Report Type: Spontaneous
  Country: US (occurrence: US)
  Receive Date: 20190126
  Receipt Date: 20190126
  Transmission Date: 20190417
  Serious: No
  Sender: FDA-Public Use
  Company Number: PHEH2019US003066

PATIENT
  Sex: Female

DRUGS (1)
  1. AFINITOR [Suspect]
     Active Substance: EVEROLIMUS
     Indication: OVARIAN CANCER
     Dosage: 10 MG, ONCE/SINGLE
     Route: 048
     Dates: start: 20190104

REACTIONS (3)
  - Pyrexia [Recovering/Resolving]
  - Headache [Recovering/Resolving]
  - Oral pain [Recovering/Resolving]
